FAERS Safety Report 14330929 (Version 1)
Quarter: 2017Q4

REPORT INFORMATION
  Report Type: Spontaneous
  Country: CA (occurrence: CA)
  Receive Date: 20171228
  Receipt Date: 20171228
  Transmission Date: 20180321
  Serious: Yes (Other)
  Sender: FDA-Public Use
  Company Number: CA-APOTEX-2017AP023785

PATIENT
  Age: 90 Year
  Sex: Female

DRUGS (3)
  1. VENLAFAXINE [Suspect]
     Active Substance: VENLAFAXINE HYDROCHLORIDE
     Indication: ANTIDEPRESSANT THERAPY
     Dosage: 37.5 MG, UNK, (STANDARDIZED TO 10 MG OF CITALOPRAM EQUIVALENT)
     Route: 065
  2. ESCITALOPRAM [Suspect]
     Active Substance: ESCITALOPRAM OXALATE
     Indication: ANTIDEPRESSANT THERAPY
     Dosage: 5 MG, UNK, (STANDARDIZED TO 10 MG OF CITALOPRAM EQUIVALENT)
     Route: 065
  3. DULOXETINE. [Suspect]
     Active Substance: DULOXETINE
     Indication: ANTIDEPRESSANT THERAPY
     Dosage: 15 MG, UNK, (STANDARDIZED TO 10 MG OF CITALOPRAM EQUIVALENT)
     Route: 065

REACTIONS (1)
  - Interstitial lung disease [Unknown]
